FAERS Safety Report 7208676-0 (Version None)
Quarter: 2011Q1

REPORT INFORMATION
  Report Type: 
  Country: None (occurrence: None)
  Receive Date: 20110104
  Receipt Date: 20101228
  Transmission Date: 20110831
  Serious: Yes (Other)
  Sender: FDA-Public Use
  Company Number: US-PFIZER INC-2008095224

PATIENT
  Sex: Female

DRUGS (7)
  1. ACTONEL [Concomitant]
     Indication: OSTEOPOROSIS
     Dosage: UNK
     Dates: start: 20061016
  2. PROVERA [Suspect]
     Indication: HORMONE REPLACEMENT THERAPY
     Dosage: UNK
     Route: 048
     Dates: start: 19910301, end: 19970201
  3. PREMPRO [Suspect]
     Indication: HORMONE REPLACEMENT THERAPY
     Dosage: 0.625/2.5 MG
     Route: 048
     Dates: start: 19910329, end: 20020801
  4. PREVACID [Concomitant]
     Indication: GASTROOESOPHAGEAL REFLUX DISEASE
     Dosage: UNK
     Dates: start: 20050827
  5. PREMARIN [Suspect]
     Indication: HORMONE REPLACEMENT THERAPY
     Dosage: UNK
     Route: 048
     Dates: start: 19910301, end: 19970201
  6. GALENIC /BISOPROLOL/HYDROCHLOROTHIAZIDE/ [Concomitant]
     Indication: HYPERTENSION
     Dosage: UNK
     Dates: start: 20060309
  7. FEMHRT [Suspect]
     Indication: HORMONE REPLACEMENT THERAPY
     Dosage: 1/5 TABLET
     Route: 048
     Dates: start: 20020901, end: 20031201

REACTIONS (1)
  - BREAST CANCER FEMALE [None]
